FAERS Safety Report 4504070-1 (Version None)
Quarter: 2004Q4

REPORT INFORMATION
  Report Type: 
  Country: None (occurrence: None)
  Receive Date: 20041118
  Receipt Date: 20041108
  Transmission Date: 20050328
  Serious: Yes (Other)
  Sender: FDA-Public Use
  Company Number: US-JNJFOC-20041102262

PATIENT
  Sex: Female
  Weight: 43.09 kg

DRUGS (8)
  1. REMICADE [Suspect]
     Indication: RHEUMATOID ARTHRITIS
     Route: 042
  2. MORPHINE [Concomitant]
  3. BEXTRA [Concomitant]
  4. TOPROL-XL [Concomitant]
  5. COZAAR [Concomitant]
  6. FE-TINIC [Concomitant]
  7. METHOTREXATE [Concomitant]
  8. FOSAMAX [Concomitant]

REACTIONS (4)
  - ARTHRALGIA [None]
  - DIFFICULTY IN WALKING [None]
  - MUSCULAR WEAKNESS [None]
  - WHEELCHAIR USER [None]
